FAERS Safety Report 8228058-2 (Version None)
Quarter: 2012Q1

REPORT INFORMATION
  Report Type: 
  Country: None (occurrence: None)
  Receive Date: 20120322
  Receipt Date: 20120109
  Transmission Date: 20120608
  Serious: No
  Sender: FDA-Public Use
  Company Number: US-BRISTOL-MYERS SQUIBB COMPANY-16338139

PATIENT
  Sex: Female

DRUGS (1)
  1. ERBITUX [Suspect]
     Indication: METASTATIC NEOPLASM
     Dates: start: 20120104

REACTIONS (4)
  - PAIN [None]
  - NAUSEA [None]
  - DECREASED APPETITE [None]
  - MALAISE [None]
